FAERS Safety Report 10330431 (Version 1)
Quarter: 2014Q3

REPORT INFORMATION
  Report Type: Spontaneous
  Country: FR (occurrence: FR)
  Receive Date: 20140722
  Receipt Date: 20140722
  Transmission Date: 20150326
  Serious: Yes (Death, Hospitalization)
  Sender: FDA-Public Use
  Company Number: FR-EMCURE-000791

PATIENT
  Age: 71 Year
  Sex: Male

DRUGS (7)
  1. ARACYTINE [Suspect]
     Active Substance: CYTARABINE
     Indication: PRODUCT USED FOR UNKNOWN INDICATION
     Route: 042
     Dates: start: 199210
  2. ETOPOSIDE. [Suspect]
     Active Substance: ETOPOSIDE
     Indication: PRODUCT USED FOR UNKNOWN INDICATION
     Route: 065
     Dates: start: 199210
  3. AMSACRINE [Suspect]
     Active Substance: AMSACRINE
     Indication: PRODUCT USED FOR UNKNOWN INDICATION
     Route: 042
     Dates: start: 1994
  4. MITOXANTRONE/MITOXANTRONE HYDROCHLORIDE [Suspect]
     Active Substance: MITOXANTRONE HYDROCHLORIDE
     Indication: PRODUCT USED FOR UNKNOWN INDICATION
     Route: 065
     Dates: start: 1994
  5. IDARUBICIN [Suspect]
     Active Substance: IDARUBICIN
     Indication: PRODUCT USED FOR UNKNOWN INDICATION
     Route: 042
     Dates: start: 199210
  6. BICNU [Suspect]
     Active Substance: CARMUSTINE
     Indication: PRODUCT USED FOR UNKNOWN INDICATION
     Route: 042
     Dates: start: 1994
  7. CYTARABINE/CYTARABINE HYDROCHLORIDE/CYTARABINE OCFOSFATE [Suspect]
     Active Substance: CYTARABINE
     Indication: PRODUCT USED FOR UNKNOWN INDICATION
     Dosage: MAINTENANCE WITH 4 COURSES OF CYTARABINE IN JAN-1994.
     Route: 042
     Dates: start: 199210

REACTIONS (7)
  - Myelodysplastic syndrome [Fatal]
  - Refractory anaemia with an excess of blasts [None]
  - Pain [None]
  - Bacterial disease carrier [None]
  - Hypernatraemia [None]
  - Clostridium difficile colitis [None]
  - Encephalopathy [None]

NARRATIVE: CASE EVENT DATE: 201304
